FAERS Safety Report 4853589-2 (Version None)
Quarter: 2005Q4

REPORT INFORMATION
  Report Type: 
  Country: None (occurrence: None)
  Receive Date: 20051129
  Receipt Date: 20050913
  Transmission Date: 20060501
  Serious: No
  Sender: FDA-Public Use
  Company Number: WAES 0509USA01578

PATIENT
  Sex: Female

DRUGS (3)
  1. ZETIA [Suspect]
     Dosage: PO
     Route: 048
     Dates: start: 20040101, end: 20040101
  2. ZETIA [Suspect]
     Dosage: PO
     Route: 048
     Dates: start: 20050101
  3. .. [Concomitant]

REACTIONS (2)
  - DRUG DISPENSING ERROR [None]
  - DRUG INEFFECTIVE [None]
